FAERS Safety Report 12117928 (Version 3)
Quarter: 2016Q2

REPORT INFORMATION
  Report Type: Report from Study
  Country: US (occurrence: US)
  Receive Date: 20160226
  Receipt Date: 20160524
  Transmission Date: 20160815
  Serious: Yes (Other)
  Sender: FDA-Public Use
  Company Number: US-GILEAD-2016-0200521

PATIENT
  Age: 78 Year
  Sex: Male

DRUGS (1)
  1. AMBRISENTAN [Suspect]
     Active Substance: AMBRISENTAN
     Indication: PULMONARY ARTERIAL HYPERTENSION
     Dosage: 5 MG, QD
     Route: 065
     Dates: start: 20141016

REACTIONS (11)
  - Malaise [Unknown]
  - Oxygen saturation decreased [Unknown]
  - Tremor [Unknown]
  - Dizziness [Unknown]
  - Nasal congestion [Unknown]
  - Muscular weakness [Unknown]
  - Balance disorder [Unknown]
  - Asthenia [Unknown]
  - Pulmonary arterial hypertension [Unknown]
  - Abdominal discomfort [Unknown]
  - Dyspnoea [Unknown]
